FAERS Safety Report 8496051-0 (Version None)
Quarter: 2012Q3

REPORT INFORMATION
  Report Type: 
  Country: None (occurrence: None)
  Receive Date: 20120709
  Receipt Date: 20091210
  Transmission Date: 20120928
  Serious: Yes (Hospitalization)
  Sender: FDA-Public Use
  Company Number: US-ROCHE-680275

PATIENT
  Sex: Male
  Weight: 73 kg

DRUGS (3)
  1. TAMIFLU [Suspect]
     Indication: INFLUENZA
     Route: 065
  2. AVELOX [Concomitant]
     Dates: start: 20091120, end: 20091123
  3. ROBITUSSIN DM [Concomitant]
     Dosage: DRUG: ROBITUSSIN DM MAX. DAILY DOSE: 6-12 TSP.
     Dates: start: 20091120, end: 20091123

REACTIONS (1)
  - PNEUMONIA STAPHYLOCOCCAL [None]
